FAERS Safety Report 7248485-X (Version None)
Quarter: 2011Q1

REPORT INFORMATION
  Report Type: 
  Country: None (occurrence: None)
  Receive Date: 20110127
  Receipt Date: 20110121
  Transmission Date: 20110831
  Serious: Yes (Other)
  Sender: FDA-Public Use
  Company Number: US-AMGEN-USASP2011004016

PATIENT
  Age: 53 Year
  Sex: Female

DRUGS (7)
  1. RENVELA [Concomitant]
  2. MULTIVITAMIN                       /00097801/ [Concomitant]
  3. PEPCID [Concomitant]
  4. FENTANYL [Concomitant]
  5. SENSIPAR [Suspect]
     Indication: HYPERPARATHYROIDISM SECONDARY
  6. HECTOROL [Concomitant]
  7. COLACE [Concomitant]

REACTIONS (7)
  - PAIN [None]
  - IMPAIRED HEALING [None]
  - HYPERKALAEMIA [None]
  - TRANSFUSION [None]
  - THERAPEUTIC RESPONSE DECREASED [None]
  - WOUND [None]
  - GENERAL PHYSICAL HEALTH DETERIORATION [None]
